FAERS Safety Report 10152434 (Version 2)
Quarter: 2014Q2

REPORT INFORMATION
  Report Type: Spontaneous
  Country: US (occurrence: US)
  Receive Date: 20140505
  Receipt Date: 20140505
  Transmission Date: 20141212
  Serious: No
  Sender: FDA-Public Use
  Company Number: US-TEVA-390091USA

PATIENT
  Sex: Female

DRUGS (2)
  1. CLARAVIS [Suspect]
     Dates: start: 20130206, end: 201303
  2. DIETARY SUPPLEMENT [Suspect]

REACTIONS (3)
  - Blood cholesterol increased [Unknown]
  - Hepatic enzyme increased [Unknown]
  - Mood altered [Unknown]
